FAERS Safety Report 10598568 (Version 1)
Quarter: 2014Q4

REPORT INFORMATION
  Report Type: Other
  Country: IT (occurrence: IT)
  Receive Date: 20141121
  Receipt Date: 20141121
  Transmission Date: 20150529
  Serious: Yes (Other)
  Sender: FDA-Public Use
  Company Number: IT-ASTELLAS-2014US017614

PATIENT
  Age: 30 Year
  Sex: Male
  Weight: 52 kg

DRUGS (2)
  1. ADVAGRAF [Suspect]
     Active Substance: TACROLIMUS
     Indication: IMMUNOSUPPRESSION
     Route: 048
     Dates: start: 20141106, end: 20141110
  2. ADVAGRAF [Suspect]
     Active Substance: TACROLIMUS
     Indication: IMMUNOSUPPRESSION
     Route: 048
     Dates: start: 20141106, end: 20141110

REACTIONS (1)
  - Toxic encephalopathy [Unknown]

NARRATIVE: CASE EVENT DATE: 20141108
